FAERS Safety Report 8553744-4 (Version None)
Quarter: 2012Q3

REPORT INFORMATION
  Report Type: 
  Country: None (occurrence: None)
  Receive Date: 20120731
  Receipt Date: 20120723
  Transmission Date: 20120928
  Serious: Yes (Hospitalization)
  Sender: FDA-Public Use
  Company Number: US-GLAXOSMITHKLINE-A0942036A

PATIENT
  Sex: Male

DRUGS (1)
  1. AVANDIA [Suspect]
     Indication: TYPE 2 DIABETES MELLITUS
     Route: 048
     Dates: start: 20030313, end: 20070801

REACTIONS (7)
  - MITRAL VALVE INCOMPETENCE [None]
  - CATHETERISATION CARDIAC [None]
  - ATRIAL FIBRILLATION [None]
  - CARDIAC FAILURE CONGESTIVE [None]
  - CARDIAC ASSISTANCE DEVICE USER [None]
  - IMPLANTABLE DEFIBRILLATOR INSERTION [None]
  - CARDIOMYOPATHY [None]
